FAERS Safety Report 18771276 (Version 1)
Quarter: 2021Q1

REPORT INFORMATION
  Report Type: Other
  Country: US (occurrence: US)
  Receive Date: 20210122
  Receipt Date: 20210122
  Transmission Date: 20210419
  Serious: Yes (Other)
  Sender: FDA-Public Use
  Company Number: US-ROCHE-2751797

PATIENT
  Sex: Female

DRUGS (1)
  1. ESBRIET [Suspect]
     Active Substance: PIRFENIDONE
     Indication: IDIOPATHIC PULMONARY FIBROSIS
     Dosage: 2 PILLS 1 TIME EACH DAY ? 267 MILLIGRAMS
     Route: 048

REACTIONS (5)
  - Off label use [Unknown]
  - Nausea [Unknown]
  - Intentional product misuse [Unknown]
  - Dizziness [Unknown]
  - Loss of consciousness [Unknown]
